FAERS Safety Report 5511187-1 (Version None)
Quarter: 2007Q4

REPORT INFORMATION
  Report Type: 
  Country: None (occurrence: None)
  Receive Date: 20071109
  Receipt Date: 20071031
  Transmission Date: 20080405
  Serious: Yes (Other)
  Sender: FDA-Public Use
  Company Number: ES-ELI_LILLY_AND_COMPANY-ES200711001094

PATIENT
  Age: 74 Year
  Sex: Female

DRUGS (5)
  1. TERIPARATIDE [Suspect]
     Indication: OSTEOPOROSIS
     Dosage: 20 UG, UNK
     Route: 058
     Dates: start: 20070101
  2. OMEPRAZOLE [Concomitant]
     Indication: ULCER
  3. SUMIAL [Concomitant]
  4. CALCIO [Concomitant]
     Indication: OSTEOPOROSIS
  5. PENTASA [Concomitant]

REACTIONS (1)
  - HEPATIC NEOPLASM [None]
